FAERS Safety Report 14088957 (Version 1)
Quarter: 2017Q4

REPORT INFORMATION
  Report Type: Spontaneous
  Country: GB (occurrence: GB)
  Receive Date: 20171013
  Receipt Date: 20171013
  Transmission Date: 20180321
  Serious: Yes (Other)
  Sender: FDA-Public Use
  Company Number: GB-ABBVIE-17P-167-2131181-00

PATIENT
  Sex: Female

DRUGS (2)
  1. EPILIM [Suspect]
     Active Substance: VALPROATE SODIUM
     Indication: PRODUCT USED FOR UNKNOWN INDICATION
     Dosage: EXTENDED RELEASE TABLET
     Route: 048
  2. EPILIM [Suspect]
     Active Substance: VALPROATE SODIUM
     Dosage: EXTENDED RELEASE TABLET
     Route: 048

REACTIONS (8)
  - Hallucination [Not Recovered/Not Resolved]
  - Hypotension [Not Recovered/Not Resolved]
  - Memory impairment [Not Recovered/Not Resolved]
  - Extra dose administered [Unknown]
  - Prescribed overdose [Unknown]
  - Insomnia [Not Recovered/Not Resolved]
  - Seizure [Unknown]
  - Feeling abnormal [Not Recovered/Not Resolved]
